FAERS Safety Report 5273890-0 (Version None)
Quarter: 2007Q1

REPORT INFORMATION
  Report Type: 
  Country: None (occurrence: None)
  Receive Date: 20070323
  Receipt Date: 20070316
  Transmission Date: 20070707
  Serious: Yes (Other)
  Sender: FDA-Public Use
  Company Number: CA-ROCHE-488491

PATIENT
  Age: 16 Year
  Sex: Female
  Weight: 63 kg

DRUGS (6)
  1. NAPROSYN [Suspect]
     Indication: DRUG USE FOR UNKNOWN INDICATION
     Route: 048
  2. CORTEF [Concomitant]
     Route: 048
  3. SYNTHROID [Concomitant]
     Route: 048
  4. TEGRETOL [Concomitant]
     Route: 048
  5. CALCIUM [Concomitant]
     Route: 048
  6. CHLORAL HYDRATE [Concomitant]
     Route: 048

REACTIONS (3)
  - FATIGUE [None]
  - HYPONATRAEMIA [None]
  - MALAISE [None]
